FAERS Safety Report 4800158-6 (Version None)
Quarter: 2005Q4

REPORT INFORMATION
  Report Type: 
  Country: None (occurrence: None)
  Receive Date: 20051012
  Receipt Date: 20051012
  Transmission Date: 20060501
  Serious: Yes (Hospitalization)
  Sender: FDA-Public Use
  Company Number: None

PATIENT
  Sex: Female
  Weight: 22.9 kg

DRUGS (6)
  1. VINCRISTINE [Suspect]
     Indication: ACUTE LYMPHOCYTIC LEUKAEMIA
     Dosage: SEE IMAGE
     Dates: start: 20050923
  2. PEG-ASPARAGINASE [Suspect]
     Dosage: SEE IMAGE
     Dates: start: 20050929
  3. DAUNOMYCIN [Suspect]
     Dosage: SEE IMAGE
     Dates: start: 20050923
  4. DEXAMETHASONE [Suspect]
     Dosage: SEE IMAGE
     Route: 039
     Dates: start: 20050923
  5. CYTARABINE [Suspect]
     Dosage: SEE IMAGE
     Route: 039
     Dates: start: 20050923
  6. METHOTREXATE [Suspect]
     Dosage: SEE IMAGE
     Dates: start: 20050930

REACTIONS (20)
  - BACTERAEMIA [None]
  - CREPITATIONS [None]
  - DRUG INEFFECTIVE [None]
  - DYSPNOEA [None]
  - GRUNTING [None]
  - HEADACHE [None]
  - HEART RATE DECREASED [None]
  - HEART RATE INCREASED [None]
  - HYPERGLYCAEMIA [None]
  - HYPOTENSION [None]
  - INTERCOSTAL RETRACTION [None]
  - LUNG INFILTRATION [None]
  - MALAISE [None]
  - PAIN [None]
  - PAIN IN EXTREMITY [None]
  - PETECHIAE [None]
  - PULSE ABSENT [None]
  - PYREXIA [None]
  - TACHYPNOEA [None]
  - URINE OUTPUT DECREASED [None]
